FAERS Safety Report 10475047 (Version 1)
Quarter: 2014Q3

REPORT INFORMATION
  Report Type: Report from Study
  Country: GB (occurrence: GB)
  Receive Date: 20140925
  Receipt Date: 20140925
  Transmission Date: 20150326
  Serious: Yes (Hospitalization)
  Sender: FDA-Public Use
  Company Number: GB-009507513-1409GBR010001

PATIENT
  Age: 50 Year
  Sex: Male
  Weight: 86.9 kg

DRUGS (11)
  1. RALTEGRAVIR POTASSIUM [Suspect]
     Active Substance: RALTEGRAVIR POTASSIUM
     Dosage: TOTAL DAILY DOSE REPORTED AS 1200 MG
     Route: 048
     Dates: start: 20070620
  2. LOSARTAN POTASSIUM. [Concomitant]
     Active Substance: LOSARTAN POTASSIUM
     Indication: HYPERTENSION
     Dosage: TOTAL DAILY DOSE: 50 MG
     Route: 048
     Dates: start: 2013
  3. TRAMADOL HYDROCHLORIDE. [Concomitant]
     Active Substance: TRAMADOL HYDROCHLORIDE
     Indication: BACK PAIN
     Dosage: TOTAL DAILY DOSE: 100 MG
     Route: 048
  4. DARUNAVIR [Concomitant]
     Active Substance: DARUNAVIR
     Indication: HIV INFECTION
     Dosage: TOTAL DAILY DOSE: 1200 MG
     Route: 048
     Dates: start: 20070620
  5. FLUTICASONE PROPIONATE (+) SALMETEROL XINAFOATE [Concomitant]
     Active Substance: FLUTICASONE PROPIONATE\SALMETEROL XINAFOATE
     Indication: ASTHMA
     Dosage: TOTAL DAILY DOSE: 100 MICROGRAMS, INHALATION
     Route: 055
  6. RALTEGRAVIR POTASSIUM [Suspect]
     Active Substance: RALTEGRAVIR POTASSIUM
     Indication: HIV INFECTION
     Dosage: 800 MG
     Route: 048
     Dates: start: 20100408
  7. TIOTROPIUM BROMIDE [Concomitant]
     Active Substance: TIOTROPIUM BROMIDE
     Indication: ASTHMA
     Dosage: TOTAL DAILY DOSE: 18 MICROGRAMS, INHALATION
     Route: 055
     Dates: start: 2013
  8. RITONAVIR [Concomitant]
     Active Substance: RITONAVIR
     Indication: HIV INFECTION
     Dosage: TOTAL DAILY DOSE: 200 MG
     Route: 048
     Dates: start: 20051025
  9. ALBUTEROL. [Concomitant]
     Active Substance: ALBUTEROL
     Indication: ASTHMA
     Dosage: TOTAL DAILY DOSE: 100 MICROGRAMS, INHALATION
     Route: 055
     Dates: start: 2011
  10. AMITRIPTYLINE HYDROCHLORIDE. [Concomitant]
     Active Substance: AMITRIPTYLINE HYDROCHLORIDE
     Indication: DEPRESSION
     Dosage: 25 MG
     Route: 048
     Dates: start: 2013
  11. ETRAVIRINE [Concomitant]
     Active Substance: ETRAVIRINE
     Indication: HIV INFECTION
     Dosage: TOTAL DAILY DOSE: 400 MG
     Route: 048
     Dates: start: 20070620

REACTIONS (2)
  - Obstructive airways disorder [Recovered/Resolved]
  - Cardiac failure [Recovered/Resolved]

NARRATIVE: CASE EVENT DATE: 20140804
